FAERS Safety Report 9887361 (Version 1)
Quarter: 2014Q1

REPORT INFORMATION
  Report Type: Spontaneous
  Country: FR (occurrence: FR)
  Receive Date: 20140211
  Receipt Date: 20140211
  Transmission Date: 20141002
  Serious: Yes (Other)
  Sender: FDA-Public Use
  Company Number: FR-BRISTOL-MYERS SQUIBB COMPANY-20125985

PATIENT
  Age: 47 Year
  Sex: Male
  Weight: 114 kg

DRUGS (5)
  1. VIDEX [Suspect]
  2. VIREAD [Suspect]
  3. ISENTRESS [Suspect]
  4. NORVIR [Suspect]
  5. APTIVUS [Suspect]

REACTIONS (1)
  - Dental caries [Not Recovered/Not Resolved]
